FAERS Safety Report 25750564 (Version 1)
Quarter: 2025Q3

REPORT INFORMATION
  Report Type: Spontaneous
  Country: US (occurrence: None)
  Receive Date: 20250829
  Receipt Date: 20250829
  Transmission Date: 20251020
  Serious: Yes (Hospitalization)
  Sender: FDA-CTU
  Company Number: None

PATIENT
  Age: 81 Year
  Sex: Female

DRUGS (7)
  1. ADEMPAS [Suspect]
     Active Substance: RIOCIGUAT
     Indication: Pulmonary arterial hypertension
     Dosage: FREQUENCY : TWICE A DAY;?
     Route: 048
     Dates: start: 20241030
  2. WARFARIN [Concomitant]
     Active Substance: WARFARIN
  3. GABAPENTIN [Concomitant]
     Active Substance: GABAPENTIN
  4. MIRTAZAPINE [Concomitant]
     Active Substance: MIRTAZAPINE
  5. HYZAAR [Concomitant]
     Active Substance: HYDROCHLOROTHIAZIDE\LOSARTAN POTASSIUM
  6. FUROSEMIDE [Concomitant]
     Active Substance: FUROSEMIDE
  7. LOVASTATIN [Concomitant]
     Active Substance: LOVASTATIN

REACTIONS (7)
  - Fall [None]
  - Dehydration [None]
  - Acute kidney injury [None]
  - Treatment noncompliance [None]
  - Lung consolidation [None]
  - Pneumonia [None]
  - Atelectasis [None]

NARRATIVE: CASE EVENT DATE: 20250820
